FAERS Safety Report 10189727 (Version 1)
Quarter: 2014Q2

REPORT INFORMATION
  Report Type: Spontaneous
  Country: US (occurrence: US)
  Receive Date: 20140522
  Receipt Date: 20140522
  Transmission Date: 20141212
  Serious: Yes (Other)
  Sender: FDA-Public Use
  Company Number: US-SA-2013SA102463

PATIENT
  Age: 53 Year
  Sex: Female
  Weight: 122 kg

DRUGS (8)
  1. LANTUS SOLOSTAR [Suspect]
     Indication: TYPE 1 DIABETES MELLITUS
     Dosage: DOSE:90 UNIT(S)
     Route: 058
  2. HUMALOG [Suspect]
     Route: 065
  3. SOLOSTAR [Concomitant]
     Indication: TYPE 1 DIABETES MELLITUS
  4. LISINOPRIL [Concomitant]
     Indication: BLOOD PRESSURE
  5. LEVOTHYROXINE [Concomitant]
     Indication: THYROID DISORDER
  6. SERTRALINE [Concomitant]
     Indication: DEPRESSION
  7. ZOLPIDEM [Concomitant]
     Indication: SLEEP DISORDER
     Dates: start: 20130814
  8. NEXIUM [Concomitant]
     Indication: GASTROOESOPHAGEAL REFLUX DISEASE

REACTIONS (3)
  - Cataract [Unknown]
  - Eye disorder [Unknown]
  - Visual impairment [Unknown]
